FAERS Safety Report 5305294-6 (Version None)
Quarter: 2007Q2

REPORT INFORMATION
  Report Type: 
  Country: None (occurrence: None)
  Receive Date: 20070424
  Receipt Date: 20070411
  Transmission Date: 20071010
  Serious: Yes (Hospitalization)
  Sender: FDA-Public Use
  Company Number: PHBS2007JP04082

PATIENT
  Age: 16 Year
  Sex: Female

DRUGS (1)
  1. TEGRETOL [Suspect]
     Indication: EPILEPSY
     Dosage: 400 MG/DAY
     Route: 048

REACTIONS (3)
  - BACTERIA STOOL IDENTIFIED [None]
  - ENTEROCOLITIS INFECTIOUS [None]
  - HAEMATOCHEZIA [None]
